FAERS Safety Report 7132480-5 (Version None)
Quarter: 2010Q4

REPORT INFORMATION
  Report Type: 
  Country: None (occurrence: None)
  Receive Date: 20101202
  Receipt Date: 20090924
  Transmission Date: 20110411
  Serious: Yes (Other)
  Sender: FDA-Public Use
  Company Number: AU-ROCHE-742275

PATIENT

DRUGS (4)
  1. AVASTIN [Suspect]
     Dosage: FORM: INFUSION
     Route: 065
  2. XELODA [Suspect]
     Route: 065
  3. OXALIPLATIN [Suspect]
     Route: 065
  4. FOLFOX REGIMEN [Concomitant]

REACTIONS (2)
  - BLOOD PRESSURE INCREASED [None]
  - PARAESTHESIA ORAL [None]
